FAERS Safety Report 4686696-8 (Version None)
Quarter: 2005Q2

REPORT INFORMATION
  Report Type: 
  Country: None (occurrence: None)
  Receive Date: 20050608
  Receipt Date: 20050608
  Transmission Date: 20051028
  Serious: Yes (Hospitalization)
  Sender: FDA-Public Use
  Company Number: 2005082163

PATIENT
  Age: 55 Year
  Sex: Male

DRUGS (3)
  1. TAHOR (ATORVASTATIN) [Suspect]
     Indication: HYPERCHOLESTEROLAEMIA
  2. ALL OTHER THERAPEUTIC PRODUCTS (ALL OTHER THERAPEUTIC PRODUCTS) [Concomitant]
  3. ACETYLICYLATE LYSINE (ACETYLISALICYLATE SODIUM) [Concomitant]

REACTIONS (1)
  - VERTIGO [None]
